FAERS Safety Report 7065052-1 (Version None)
Quarter: 2010Q4

REPORT INFORMATION
  Report Type: 
  Country: None (occurrence: None)
  Receive Date: 20101027
  Receipt Date: 19910901
  Transmission Date: 20110411
  Serious: Yes (Death)
  Sender: FDA-Public Use
  Company Number: JP-ROCHE-910900028001

PATIENT
  Age: 76 Year
  Sex: Male
  Weight: 55 kg

DRUGS (9)
  1. CANFERON-A [Suspect]
     Indication: RENAL CANCER
     Route: 030
     Dates: start: 19890202, end: 19890215
  2. CANFERON-A [Suspect]
     Route: 030
     Dates: start: 19881111, end: 19881211
  3. CANFERON-A [Suspect]
     Route: 030
     Dates: start: 19881212, end: 19890111
  4. CANFERON-A [Suspect]
     Route: 030
     Dates: start: 19890112, end: 19890201
  5. CANFERON-A [Suspect]
     Route: 030
     Dates: start: 19890216, end: 19890415
  6. CANFERON-A [Suspect]
     Route: 030
     Dates: start: 19890416, end: 19890515
  7. CANFERON-A [Suspect]
     Route: 030
     Dates: start: 19890516, end: 19890615
  8. CANFERON-A [Suspect]
     Route: 030
     Dates: start: 19890616, end: 19890815
  9. CANFERON-A [Suspect]
     Route: 030
     Dates: start: 19890816, end: 19890915

REACTIONS (3)
  - DEATH [None]
  - DECREASED APPETITE [None]
  - GLOSSITIS [None]
